FAERS Safety Report 19960179 (Version 1)
Quarter: 2021Q4

REPORT INFORMATION
  Report Type: Spontaneous
  Country: US (occurrence: US)
  Receive Date: 20211015
  Receipt Date: 20211015
  Transmission Date: 20220303
  Serious: Yes (Hospitalization)
  Sender: FDA-Public Use
  Company Number: US-CVS-2120613

PATIENT
  Age: 64 Year
  Sex: Male

DRUGS (1)
  1. TRIPLE ANTIBIOTIC AND PAIN RELIEF MAXIMUM STRENGTH [Suspect]
     Active Substance: BACITRACIN ZINC\NEOMYCIN SULFATE\POLYMYXIN B SULFATE\PRAMOXINE HYDROCHLORIDE
     Indication: Contusion
     Route: 061
     Dates: start: 20210212, end: 20210213

REACTIONS (2)
  - Urticaria [None]
  - Wound [None]
